FAERS Safety Report 10269922 (Version 1)
Quarter: 2014Q2

REPORT INFORMATION
  Report Type: Spontaneous
  Country: US (occurrence: None)
  Receive Date: 20140626
  Receipt Date: 20140626
  Transmission Date: 20141212
  Serious: Yes (Other)
  Sender: FDA-Public Use
  Company Number: US-001070

PATIENT
  Sex: Female

DRUGS (8)
  1. GATTEX [Suspect]
     Indication: SHORT-BOWEL SYNDROME
     Route: 058
     Dates: start: 201404, end: 2014
  2. AVONEX [Concomitant]
  3. SYNTHROID [Concomitant]
  4. VITAMIN D3 [Concomitant]
  5. GABAPENTIN [Concomitant]
  6. FENTANYL [Concomitant]
  7. SOMA [Concomitant]
  8. SOLUTIONS FOR PARENTERAL NUTRITION [Concomitant]

REACTIONS (2)
  - Abdominal distension [None]
  - Depression [None]
